FAERS Safety Report 14511620 (Version 3)
Quarter: 2018Q1

REPORT INFORMATION
  Report Type: Report from Study
  Country: FR (occurrence: FR)
  Receive Date: 20180209
  Receipt Date: 20180227
  Transmission Date: 20180509
  Serious: Yes (Other)
  Sender: FDA-Public Use
  Company Number: FR-CELLTRION INC.-2017FR014096

PATIENT

DRUGS (3)
  1. SPECIAFOLDINE [Concomitant]
     Active Substance: FOLIC ACID
     Dosage: UNK
     Route: 064
     Dates: start: 20170420
  2. BETAMETHASON                       /00008501/ [Concomitant]
     Active Substance: BETAMETHASONE
     Dosage: UNK
     Dates: start: 201711
  3. INFLECTRA [Suspect]
     Active Substance: INFLIXIMAB-DYYB
     Indication: PRODUCT USED FOR UNKNOWN INDICATION
     Dosage: 400 MG, CYCLIC, EVERY 7 WEEKS
     Route: 065
     Dates: start: 20140730

REACTIONS (1)
  - Abortion spontaneous [Recovered/Resolved]

NARRATIVE: CASE EVENT DATE: 20171108
